FAERS Safety Report 8598728-5 (Version None)
Quarter: 2012Q3

REPORT INFORMATION
  Report Type: 
  Country: None (occurrence: None)
  Receive Date: 20120816
  Receipt Date: 20120112
  Transmission Date: 20120928
  Serious: Yes (Death, Hospitalization)
  Sender: FDA-Public Use
  Company Number: US-ROCHE-1100886

PATIENT
  Sex: Male

DRUGS (3)
  1. ACTIVASE [Suspect]
     Indication: MYOCARDIAL INFARCTION
  2. EPINEPHRINE [Concomitant]
  3. AMIODARONE [Concomitant]

REACTIONS (6)
  - ENCEPHALOPATHY [None]
  - RENAL FAILURE ACUTE [None]
  - CARDIAC FAILURE [None]
  - BRAIN OEDEMA [None]
  - BUNDLE BRANCH BLOCK [None]
  - RENAL FAILURE CHRONIC [None]
